FAERS Safety Report 23288667 (Version 9)
Quarter: 2025Q1

REPORT INFORMATION
  Report Type: Spontaneous
  Country: US (occurrence: US)
  Receive Date: 20231212
  Receipt Date: 20250325
  Transmission Date: 20250408
  Serious: No
  Sender: SANOFI AVENTIS
  Company Number: US-SA-SAC20231205001294

PATIENT
  Age: 36 Year
  Sex: Female

DRUGS (10)
  1. DUPIXENT [Suspect]
     Active Substance: DUPILUMAB
     Indication: Nasal polyps
     Dosage: 300 MG, QOW
     Route: 058
     Dates: start: 20231116
  2. DUPIXENT [Suspect]
     Active Substance: DUPILUMAB
     Indication: Urticaria
  3. ZYRTEC [Concomitant]
     Active Substance: CETIRIZINE HYDROCHLORIDE
  4. DIFLUCAN [Concomitant]
     Active Substance: FLUCONAZOLE
     Dates: start: 20250314
  5. BETAMETHASONE DIPROPIONATE [Concomitant]
     Active Substance: BETAMETHASONE DIPROPIONATE
     Dates: start: 20250303
  6. BETAMETHASONE DIPROPIONATE [Concomitant]
     Active Substance: BETAMETHASONE DIPROPIONATE
     Dates: start: 20250305
  7. BETAMETHASONE DIPROPIONATE [Concomitant]
     Active Substance: BETAMETHASONE DIPROPIONATE
     Dates: start: 20250315
  8. CLOTRIMAZOLE [Concomitant]
     Active Substance: CLOTRIMAZOLE
     Dates: start: 20250303
  9. CLOTRIMAZOLE [Concomitant]
     Active Substance: CLOTRIMAZOLE
     Dates: start: 20250305
  10. CLOTRIMAZOLE [Concomitant]
     Active Substance: CLOTRIMAZOLE
     Dates: start: 20250315

REACTIONS (31)
  - Immune system disorder [Unknown]
  - Eye infection [Recovering/Resolving]
  - COVID-19 [Recovered/Resolved]
  - Gingival swelling [Recovering/Resolving]
  - Dysphonia [Unknown]
  - Gingival erythema [Recovering/Resolving]
  - Rhinorrhoea [Unknown]
  - Stress at work [Unknown]
  - Mucosal disorder [Unknown]
  - Paranasal sinus discomfort [Unknown]
  - Eosinophil count increased [Unknown]
  - Hyporeflexia [Unknown]
  - Blood pressure increased [Unknown]
  - Ear dryness [Unknown]
  - Rash pruritic [Unknown]
  - Fungal infection [Recovering/Resolving]
  - Ocular hyperaemia [Unknown]
  - Eye swelling [Unknown]
  - Erythema [Unknown]
  - Headache [Unknown]
  - Upper respiratory tract infection [Recovered/Resolved]
  - Rash [Unknown]
  - Eye pruritus [Not Recovered/Not Resolved]
  - Condition aggravated [Not Recovered/Not Resolved]
  - Hypersensitivity [Not Recovered/Not Resolved]
  - Dermatitis [Unknown]
  - Pain of skin [Unknown]
  - Eczema [Unknown]
  - Weight increased [Unknown]
  - Therapeutic response unexpected [Unknown]
  - Product use in unapproved indication [Unknown]

NARRATIVE: CASE EVENT DATE: 20230101
